FAERS Safety Report 14167735 (Version 1)
Quarter: 2017Q4

REPORT INFORMATION
  Report Type: Spontaneous
  Country: US (occurrence: US)
  Receive Date: 20171107
  Receipt Date: 20171107
  Transmission Date: 20180321
  Serious: No
  Sender: FDA-Public Use
  Company Number: US-SA-2017SA080102

PATIENT
  Age: 62 Year
  Sex: Female

DRUGS (2)
  1. TOUJEO [Suspect]
     Active Substance: INSULIN GLARGINE
     Indication: TYPE 2 DIABETES MELLITUS
     Dosage: DOSE:8 UNIT(S)
     Route: 051
     Dates: start: 201703
  2. SOLOSTAR [Concomitant]
     Active Substance: DEVICE
     Indication: PANCREATIC DISORDER
     Dates: start: 201703

REACTIONS (3)
  - Drug dose omission [Unknown]
  - Product use issue [Unknown]
  - Blood glucose increased [Unknown]
